FAERS Safety Report 6765019-4 (Version None)
Quarter: 2010Q2

REPORT INFORMATION
  Report Type: 
  Country: None (occurrence: None)
  Receive Date: 20100609
  Receipt Date: 20100505
  Transmission Date: 20101027
  Serious: No
  Sender: FDA-Public Use
  Company Number: 2010010951

PATIENT
  Age: 2 Year
  Sex: Female
  Weight: 13.6079 kg

DRUGS (1)
  1. CHILDREN'S ZYRTEC ALLERGY [Suspect]
     Indication: DRUG USE FOR UNKNOWN INDICATION
     Dosage: 1/2 TSP FOR 7 DAYS, ORAL
     Route: 048
     Dates: start: 20100210, end: 20100217

REACTIONS (3)
  - COUGH [None]
  - PRODUCT QUALITY ISSUE [None]
  - WRONG DRUG ADMINISTERED [None]
